FAERS Safety Report 6102955-6 (Version None)
Quarter: 2009Q1

REPORT INFORMATION
  Report Type: 
  Country: None (occurrence: None)
  Receive Date: 20090305
  Receipt Date: 20090219
  Transmission Date: 20090719
  Serious: Yes (Hospitalization)
  Sender: FDA-Public Use
  Company Number: PHHY2009GB06439

PATIENT
  Sex: Male

DRUGS (8)
  1. CLOZARIL [Suspect]
     Indication: SCHIZOPHRENIA
     Dosage: 600 MG DAILY
     Dates: start: 20031202
  2. CLOZARIL [Suspect]
     Dosage: WEEK'S SUPPLY OF MEDICATION
     Dates: start: 20090217
  3. CLOMIPRAMINE [Suspect]
     Dosage: UNK
     Dates: start: 20090217
  4. HYOSCINE [Suspect]
     Dosage: UNK
     Dates: start: 20090217
  5. METFORMIN [Suspect]
     Dosage: UNK
     Dates: start: 20090217
  6. SIMVASTATIN [Suspect]
     Dosage: UNK
     Dates: start: 20090217
  7. LISINOPRIL [Suspect]
     Dosage: UNK
     Dates: start: 20090217
  8. OMEPRAZOLE [Suspect]
     Dosage: UNK
     Dates: start: 20090217

REACTIONS (3)
  - AGITATION [None]
  - GLASGOW COMA SCALE ABNORMAL [None]
  - OVERDOSE [None]
